FAERS Safety Report 23633341 (Version 6)
Quarter: 2024Q2

REPORT INFORMATION
  Report Type: Spontaneous
  Country: US (occurrence: US)
  Receive Date: 20240314
  Receipt Date: 20240430
  Transmission Date: 20240715
  Serious: No
  Sender: FDA-Public Use
  Company Number: US-PFIZER INC-202400051294

PATIENT
  Age: 5 Year
  Sex: Female
  Weight: 15.873 kg

DRUGS (1)
  1. GENOTROPIN [Suspect]
     Active Substance: SOMATROPIN
     Indication: Growth disorder
     Dosage: 0.4 MG, 1X/DAY
     Dates: start: 2022

REACTIONS (6)
  - Device use error [Unknown]
  - Poor quality device used [Unknown]
  - Device use issue [Unknown]
  - Device physical property issue [Unknown]
  - Device malfunction [Unknown]
  - Device mechanical issue [Unknown]
